FAERS Safety Report 15699595 (Version 2)
Quarter: 2019Q1

REPORT INFORMATION
  Report Type: Spontaneous
  Country: US (occurrence: US)
  Receive Date: 20181207
  Receipt Date: 20190114
  Transmission Date: 20190417
  Serious: Yes (Hospitalization)
  Sender: FDA-Public Use
  Company Number: US-JNJFOC-20181206268

PATIENT
  Age: 45 Year
  Sex: Female

DRUGS (1)
  1. INVOKANA [Suspect]
     Active Substance: CANAGLIFLOZIN
     Indication: TYPE 2 DIABETES MELLITUS
     Route: 048
     Dates: start: 20150927

REACTIONS (5)
  - Staphylococcal infection [Not Recovered/Not Resolved]
  - Foot deformity [Not Recovered/Not Resolved]
  - Toe amputation [Unknown]
  - Diabetic foot infection [Not Recovered/Not Resolved]
  - Osteomyelitis [Unknown]

NARRATIVE: CASE EVENT DATE: 201610
